APPROVED DRUG PRODUCT: ERYTHROMYCIN
Active Ingredient: ERYTHROMYCIN
Strength: 2%
Dosage Form/Route: GEL;TOPICAL
Application: A063211 | Product #001 | TE Code: AT
Applicant: PADAGIS US LLC
Approved: Jan 29, 1993 | RLD: No | RS: Yes | Type: RX